FAERS Safety Report 10566571 (Version 2)
Quarter: 2014Q4

REPORT INFORMATION
  Report Type: Spontaneous
  Country: IT (occurrence: IT)
  Receive Date: 20141105
  Receipt Date: 20141112
  Transmission Date: 20150529
  Serious: Yes (Hospitalization)
  Sender: FDA-Public Use
  Company Number: IT-PFIZER INC-2014304791

PATIENT
  Age: 53 Year
  Sex: Female

DRUGS (2)
  1. ANAFRANIL [Suspect]
     Active Substance: CLOMIPRAMINE HYDROCHLORIDE
     Indication: DEPRESSION
     Dosage: 20 DF, TOTAL
     Route: 048
     Dates: start: 20141003
  2. ZOLOFT [Suspect]
     Active Substance: SERTRALINE HYDROCHLORIDE
     Indication: DEPRESSION
     Dosage: 120 DF, TOTAL
     Route: 048
     Dates: start: 20141003

REACTIONS (3)
  - Drug abuse [Recovering/Resolving]
  - Diarrhoea [Recovering/Resolving]
  - Toxicity to various agents [Recovering/Resolving]

NARRATIVE: CASE EVENT DATE: 20141003
